FAERS Safety Report 6146447-7 (Version None)
Quarter: 2009Q2

REPORT INFORMATION
  Report Type: 
  Country: None (occurrence: None)
  Receive Date: 20090407
  Receipt Date: 20090330
  Transmission Date: 20091009
  Serious: Yes (Hospitalization)
  Sender: FDA-Public Use
  Company Number: A0764368A

PATIENT
  Age: 76 Year
  Sex: Female
  Weight: 70 kg

DRUGS (8)
  1. AVANDIA [Suspect]
     Indication: DIABETES MELLITUS
     Route: 048
     Dates: start: 20070101
  2. MICRONASE [Suspect]
     Indication: DIABETES MELLITUS
     Dosage: 10MG TWICE PER DAY
     Dates: end: 20081223
  3. GLIBENCLAMIDE [Suspect]
     Indication: DIABETES MELLITUS
  4. GLUCOPHAGE [Suspect]
     Indication: DIABETES MELLITUS
     Dosage: 750MG TWICE PER DAY
     Dates: start: 20081221
  5. GLIPIZIDE [Suspect]
     Indication: DIABETES MELLITUS
     Dosage: 10MG TWICE PER DAY
     Route: 048
     Dates: start: 20081224, end: 20090226
  6. FOLIC ACID [Concomitant]
  7. ACETYLSALICYLIC ACID [Concomitant]
  8. POTASSIUM CHLORIDE [Concomitant]

REACTIONS (14)
  - ASTHENIA [None]
  - BLOOD GLUCOSE DECREASED [None]
  - BLOOD GLUCOSE INCREASED [None]
  - BODY HEIGHT DECREASED [None]
  - CARDIAC DISORDER [None]
  - DIARRHOEA [None]
  - DIZZINESS [None]
  - FLATULENCE [None]
  - GLYCOSYLATED HAEMOGLOBIN INCREASED [None]
  - HYPOGLYCAEMIA [None]
  - METAMORPHOPSIA [None]
  - PNEUMONIA [None]
  - TREMOR [None]
  - VISION BLURRED [None]
